FAERS Safety Report 6923794-X (Version None)
Quarter: 2010Q3

REPORT INFORMATION
  Report Type: 
  Country: None (occurrence: None)
  Receive Date: 20100813
  Receipt Date: 20100803
  Transmission Date: 20110219
  Serious: Yes (Other)
  Sender: FDA-Public Use
  Company Number: US-ELI_LILLY_AND_COMPANY-US201008001510

PATIENT
  Age: 57 Year
  Sex: Female

DRUGS (7)
  1. CYMBALTA [Suspect]
     Indication: MAJOR DEPRESSION
     Dosage: 60 MG, DAILY (1/D)
  2. MAXZIDE [Concomitant]
  3. LYRICA [Concomitant]
  4. MEDROL [Concomitant]
     Dosage: 4 MG, 2/D
  5. CALCIUM [Concomitant]
  6. MULTI-VITAMIN [Concomitant]
  7. PERCOCET [Concomitant]
     Indication: BACK PAIN
     Dosage: UNK, AS NEEDED

REACTIONS (6)
  - ASTHENIA [None]
  - BACK DISORDER [None]
  - BALANCE DISORDER [None]
  - DIZZINESS [None]
  - DRY MOUTH [None]
  - TREMOR [None]
